FAERS Safety Report 10181844 (Version 6)
Quarter: 2015Q4

REPORT INFORMATION
  Report Type: Spontaneous
  Country: US (occurrence: US)
  Receive Date: 20140519
  Receipt Date: 20151106
  Transmission Date: 20160304
  Serious: Yes (Hospitalization)
  Sender: FDA-Public Use
  Company Number: US-GILEAD-2014-0102666

PATIENT
  Age: 35 Year
  Sex: Female

DRUGS (4)
  1. FLOLAN [Suspect]
     Active Substance: EPOPROSTENOL SODIUM
     Dosage: 13 NG/KG/MIN CONTINUOUS
     Route: 042
  2. LETAIRIS [Suspect]
     Active Substance: AMBRISENTAN
     Indication: PRODUCT USED FOR UNKNOWN INDICATION
     Dosage: 5 MG, UNK
     Route: 065
     Dates: start: 20140320
  3. FLOLAN [Suspect]
     Active Substance: EPOPROSTENOL SODIUM
     Dosage: 11 NG/KG/MIN CONTINOUSLY
     Route: 065
  4. FLOLAN [Suspect]
     Active Substance: EPOPROSTENOL SODIUM
     Indication: PULMONARY ARTERIAL HYPERTENSION
     Dosage: 6 NG/KG/MIN (CONCENTRATION 15000 NG/ML
     Route: 042
     Dates: start: 20140214

REACTIONS (8)
  - Lung disorder [Unknown]
  - Malaise [Unknown]
  - Dyspnoea exertional [Unknown]
  - Dizziness [Unknown]
  - Chest pain [Unknown]
  - Headache [Unknown]
  - Feeling cold [Unknown]
  - Dyspnoea [Unknown]

NARRATIVE: CASE EVENT DATE: 20140304
